FAERS Safety Report 4937392-0 (Version None)
Quarter: 2006Q1

REPORT INFORMATION
  Report Type: 
  Country: None (occurrence: None)
  Receive Date: 20060306
  Receipt Date: 20060221
  Transmission Date: 20060701
  Serious: Yes (Other)
  Sender: FDA-Public Use
  Company Number: 2005152672

PATIENT
  Age: 88 Year
  Sex: Female

DRUGS (1)
  1. DETROL LA [Suspect]

REACTIONS (6)
  - ANGLE CLOSURE GLAUCOMA [None]
  - DRY EYE [None]
  - EYELID PTOSIS [None]
  - HYPERTENSION [None]
  - LACRIMATION INCREASED [None]
  - LAGOPHTHALMOS [None]
